FAERS Safety Report 23544396 (Version 1)
Quarter: 2024Q1

REPORT INFORMATION
  Report Type: Report from Study
  Country: US (occurrence: None)
  Receive Date: 20240220
  Receipt Date: 20240220
  Transmission Date: 20240410
  Serious: Yes (Other)
  Sender: FDA-Public Use
  Company Number: 2024A036489

PATIENT
  Sex: Male
  Weight: 94.8 kg

DRUGS (13)
  1. CALQUENCE [Suspect]
     Active Substance: ACALABRUTINIB
     Indication: Mantle cell lymphoma
     Route: 048
  2. PANTOPRAZOLE [Concomitant]
     Active Substance: PANTOPRAZOLE
  3. ELIQUIS [Concomitant]
     Active Substance: APIXABAN
  4. BACTRIM DS [Concomitant]
     Active Substance: SULFAMETHOXAZOLE\TRIMETHOPRIM
  5. FUROSEMIDE [Concomitant]
     Active Substance: FUROSEMIDE
  6. ACYCLOVIR [Concomitant]
     Active Substance: ACYCLOVIR
  7. AMIODARONE [Concomitant]
     Active Substance: AMIODARONE
  8. METOPROLOL [Concomitant]
     Active Substance: METOPROLOL
  9. SPIRONOLACTONE [Concomitant]
     Active Substance: SPIRONOLACTONE
  10. TAMSULOSIN [Concomitant]
     Active Substance: TAMSULOSIN
  11. TYLENOL [Concomitant]
     Active Substance: ACETAMINOPHEN
  12. ONDANSETRON [Concomitant]
     Active Substance: ONDANSETRON
  13. DIPHENHYDRAMINE [Concomitant]
     Active Substance: DIPHENHYDRAMINE

REACTIONS (2)
  - Pleural effusion [Recovered/Resolved]
  - Nasopharyngitis [Not Recovered/Not Resolved]
